FAERS Safety Report 24647148 (Version 2)
Quarter: 2024Q4

REPORT INFORMATION
  Report Type: Spontaneous
  Country: FR (occurrence: FR)
  Receive Date: 20241121
  Receipt Date: 20241231
  Transmission Date: 20250115
  Serious: Yes (Other)
  Sender: ROCHE
  Company Number: FR-002147023-NVSC2024FR222544

PATIENT
  Age: 81 Year
  Sex: Male

DRUGS (1)
  1. XOLAIR [Suspect]
     Active Substance: OMALIZUMAB
     Indication: Dermatitis bullous
     Dosage: 300 MG, Q4W
     Route: 065
     Dates: start: 20240622, end: 20241014

REACTIONS (9)
  - Blood alkaline phosphatase increased [Unknown]
  - Transaminases increased [Unknown]
  - Gamma-glutamyltransferase increased [Unknown]
  - Blood lactate dehydrogenase increased [Unknown]
  - Decreased appetite [Unknown]
  - Off label use [Unknown]
  - Liver function test abnormal [Recovered/Resolved]
  - Malaise [Unknown]
  - Steatohepatitis [Unknown]

NARRATIVE: CASE EVENT DATE: 20240801
